FAERS Safety Report 7121508-4 (Version None)
Quarter: 2010Q4

REPORT INFORMATION
  Report Type: 
  Country: None (occurrence: None)
  Receive Date: 20101124
  Receipt Date: 20101105
  Transmission Date: 20110411
  Serious: Yes (Hospitalization, Other)
  Sender: FDA-Public Use
  Company Number: US-ELI_LILLY_AND_COMPANY-US201009007655

PATIENT
  Sex: Female
  Weight: 239 kg

DRUGS (11)
  1. HUMALOG [Suspect]
     Indication: DIABETES MELLITUS
     Dosage: 30 U, 3/D
     Route: 058
     Dates: start: 20040101
  2. HUMALOG [Suspect]
     Dosage: UNK, AS NEEDED
  3. HUMULIN R [Suspect]
     Dates: end: 20070723
  4. LANTUS [Concomitant]
     Dosage: 30 U, EACH MORNING
  5. CLONIDINE [Concomitant]
     Indication: HYPERTENSION
     Dosage: 0.1 MG, DAILY (1/D)
  6. XOPENEX [Concomitant]
     Indication: ASTHMA
  7. ADVAIR DISKUS 100/50 [Concomitant]
     Indication: ASTHMA
     Dosage: UNK, 2/D
  8. SINGULAIR [Concomitant]
     Indication: ASTHMA
     Dosage: 10 MG, EACH EVENING
  9. ZETIA [Concomitant]
     Indication: DYSLIPIDAEMIA
     Dosage: 10 MG, DAILY (1/D)
     Route: 048
  10. LYRICA [Concomitant]
     Indication: DIABETIC NEUROPATHY
     Dosage: 150 MG, EACH EVENING
  11. CYMBALTA [Concomitant]
     Indication: DIABETIC NEUROPATHY

REACTIONS (8)
  - BLINDNESS [None]
  - CRANIOPHARYNGIOMA [None]
  - DIABETES INSIPIDUS [None]
  - EAR PAIN [None]
  - HEADACHE [None]
  - HEMIANOPIA [None]
  - HYPOGLYCAEMIA [None]
  - HYPOPITUITARISM [None]
